FAERS Safety Report 18130554 (Version 1)
Quarter: 2020Q3

REPORT INFORMATION
  Report Type: Other
  Country: CN (occurrence: CN)
  Receive Date: 20200810
  Receipt Date: 20200810
  Transmission Date: 20201103
  Serious: Yes (Other)
  Sender: FDA-Public Use
  Company Number: CN-ROCHE-2654728

PATIENT
  Sex: Female

DRUGS (3)
  1. PACLITAXEL. [Suspect]
     Active Substance: PACLITAXEL
     Indication: HER2 POSITIVE BREAST CANCER
     Route: 041
  2. CARBOPLATIN. [Suspect]
     Active Substance: CARBOPLATIN
     Indication: HER2 POSITIVE BREAST CANCER
     Dosage: AUC 1.5
     Route: 041
  3. TRASTUZUMAB. [Suspect]
     Active Substance: TRASTUZUMAB
     Indication: HER2 POSITIVE BREAST CANCER
     Dosage: DAY1
     Route: 041

REACTIONS (10)
  - Neutrophil count decreased [Unknown]
  - Alopecia [Unknown]
  - Myelosuppression [Unknown]
  - Platelet count decreased [Unknown]
  - Hepatic function abnormal [Unknown]
  - Anaemia [Unknown]
  - Gastrointestinal disorder [Unknown]
  - Nerve injury [Unknown]
  - Febrile neutropenia [Unknown]
  - Rash [Unknown]
